FAERS Safety Report 8376064-X (Version None)
Quarter: 2012Q2

REPORT INFORMATION
  Report Type: 
  Country: None (occurrence: None)
  Receive Date: 20120522
  Receipt Date: 20120517
  Transmission Date: 20120825
  Serious: Yes (Other)
  Sender: FDA-Public Use
  Company Number: PHHY2011JP76769

PATIENT

DRUGS (2)
  1. ZOLEDRONIC ACID [Suspect]
     Indication: METASTASES TO BONE
     Dosage: UNK
  2. PAMIDRONIC ACID [Suspect]
     Indication: METASTASES TO BONE

REACTIONS (2)
  - OSTEONECROSIS OF JAW [None]
  - PAIN IN JAW [None]
